FAERS Safety Report 6062285-8 (Version None)
Quarter: 2009Q1

REPORT INFORMATION
  Report Type: 
  Country: None (occurrence: None)
  Receive Date: 20090203
  Receipt Date: 20090127
  Transmission Date: 20090719
  Serious: Yes (Death, Hospitalization)
  Sender: FDA-Public Use
  Company Number: DE-BRISTOL-MYERS SQUIBB COMPANY-14487060

PATIENT
  Age: 67 Year
  Sex: Male

DRUGS (2)
  1. ABATACEPT [Suspect]
     Indication: RHEUMATOID ARTHRITIS
     Dates: start: 20070901, end: 20080301
  2. METHOTREXATE [Suspect]
     Indication: RHEUMATOID ARTHRITIS

REACTIONS (3)
  - PNEUMONIA STAPHYLOCOCCAL [None]
  - RENAL FAILURE [None]
  - SEPTIC SHOCK [None]
